FAERS Safety Report 8084548-7 (Version None)
Quarter: 2012Q1

REPORT INFORMATION
  Report Type: 
  Country: None (occurrence: None)
  Receive Date: 20120128
  Receipt Date: 20110314
  Transmission Date: 20120608
  Serious: No
  Sender: FDA-Public Use
  Company Number: US-ABBOTT-11P-163-0711975-00

PATIENT
  Sex: Male
  Weight: 113.5 kg

DRUGS (7)
  1. HUMIRA [Suspect]
     Indication: PSORIATIC ARTHROPATHY
     Route: 058
     Dates: start: 20110212
  2. METHOTREXATE [Concomitant]
     Indication: PSORIATIC ARTHROPATHY
     Route: 048
  3. FOLIC ACID [Concomitant]
     Indication: PSORIATIC ARTHROPATHY
  4. IBUPROFEN [Concomitant]
     Indication: PAIN
     Dosage: AS NEEDED
  5. IBUPROFEN [Concomitant]
     Indication: SWELLING
  6. HUMIRA [Suspect]
     Route: 058
  7. LISINOPRIL [Concomitant]
     Indication: HYPERTENSION

REACTIONS (7)
  - ASTHENIA [None]
  - PYREXIA [None]
  - COUGH [None]
  - FATIGUE [None]
  - PNEUMONIA [None]
  - CHEST PAIN [None]
  - CHILLS [None]
